FAERS Safety Report 21926875 (Version 2)
Quarter: 2023Q2

REPORT INFORMATION
  Report Type: Spontaneous
  Country: US (occurrence: US)
  Receive Date: 20230130
  Receipt Date: 20230627
  Transmission Date: 20230721
  Serious: No
  Sender: FDA-Public Use
  Company Number: US-PFIZER INC-202300034891

PATIENT
  Age: 76 Year
  Sex: Female
  Weight: 45.81 kg

DRUGS (1)
  1. IBRANCE [Suspect]
     Active Substance: PALBOCICLIB
     Indication: Breast cancer female
     Dosage: 100 MG, CYCLIC (1 TABLET ONCE DAILY FOR 3 WEEKS THEN OFF 1 WEEK)
     Dates: end: 202212

REACTIONS (3)
  - White blood cell count decreased [Recovered/Resolved]
  - Pain [Unknown]
  - Lack of spontaneous speech [Unknown]

NARRATIVE: CASE EVENT DATE: 20221201
